FAERS Safety Report 6188697-X (Version None)
Quarter: 2009Q2

REPORT INFORMATION
  Report Type: 
  Country: None (occurrence: None)
  Receive Date: 20090513
  Receipt Date: 20090504
  Transmission Date: 20091009
  Serious: Yes (Hospitalization)
  Sender: FDA-Public Use
  Company Number: FR-ASTRAZENECA-2009CG00848

PATIENT
  Age: 17350 Day
  Sex: Female

DRUGS (4)
  1. NEXIUM [Suspect]
     Route: 048
     Dates: start: 20080901, end: 20081219
  2. LEVOTHYROX [Concomitant]
     Route: 048
     Dates: start: 20030101
  3. SEROPLEX [Concomitant]
     Route: 048
     Dates: start: 20070101
  4. EDUCTYL [Concomitant]
     Route: 054
     Dates: start: 20070101

REACTIONS (7)
  - ABDOMINAL PAIN UPPER [None]
  - CHOLESTASIS [None]
  - CYTOLYTIC HEPATITIS [None]
  - HYPERLIPASAEMIA [None]
  - INFLAMMATION [None]
  - PANCREATITIS ACUTE [None]
  - VOMITING [None]
